FAERS Safety Report 8406880-7 (Version None)
Quarter: 2012Q2

REPORT INFORMATION
  Report Type: 
  Country: None (occurrence: None)
  Receive Date: 20120604
  Receipt Date: 20120529
  Transmission Date: 20120825
  Serious: Yes (Death)
  Sender: FDA-Public Use
  Company Number: CO-ASTRAZENECA-2012SE35654

PATIENT
  Age: 45 Year
  Sex: Male

DRUGS (3)
  1. METOPROLOL SUCCINATE [Suspect]
     Indication: INFARCTION
     Route: 048
     Dates: start: 20070513, end: 20120513
  2. LOVAZA [Concomitant]
     Dosage: DAILY
     Route: 048
     Dates: end: 20120513
  3. ASPIRIN [Concomitant]
     Dosage: DAILY
     Route: 048
     Dates: end: 20120513

REACTIONS (3)
  - RESPIRATORY FAILURE [None]
  - ASPIRATION BRONCHIAL [None]
  - MYOCARDIAL INFARCTION [None]
